FAERS Safety Report 4556891-7 (Version None)
Quarter: 2005Q1

REPORT INFORMATION
  Report Type: 
  Country: None (occurrence: None)
  Receive Date: 20050120
  Receipt Date: 20041020
  Transmission Date: 20050727
  Serious: Yes (Hospitalization)
  Sender: FDA-Public Use
  Company Number: DE-MERCK-0411DEU00146

PATIENT
  Age: 64 Year
  Sex: Female

DRUGS (5)
  1. VIOXX [Suspect]
     Indication: BACK PAIN
     Route: 048
     Dates: start: 20020722, end: 20040715
  2. VIOXX [Suspect]
     Indication: ARTHRALGIA
     Route: 048
     Dates: start: 20020722, end: 20040715
  3. ASPIRIN [Concomitant]
     Route: 048
  4. RANITIDINE HYDROCHLORIDE [Concomitant]
     Route: 048
  5. LEVOTHYROXINE SODIUM [Concomitant]
     Route: 048

REACTIONS (9)
  - ASTHENIA [None]
  - CARDIOVASCULAR DISORDER [None]
  - CHEST PAIN [None]
  - DISORIENTATION [None]
  - DYSPHAGIA [None]
  - FALL [None]
  - FATIGUE [None]
  - FOREARM FRACTURE [None]
  - NAUSEA [None]
